FAERS Safety Report 5039841-9 (Version None)
Quarter: 2006Q2

REPORT INFORMATION
  Report Type: 
  Country: None (occurrence: None)
  Receive Date: 20060630
  Receipt Date: 20060626
  Transmission Date: 20061013
  Serious: Yes (Hospitalization)
  Sender: FDA-Public Use
  Company Number: US-RB-3494-2006

PATIENT
  Sex: Female
  Weight: 79.45 kg

DRUGS (4)
  1. BUPRENORPHINE, NALOXONE [Suspect]
     Indication: DRUG DEPENDENCE
     Dosage: PATIOENT WOULD TAKE 4 MG (1/2 8 MG TABLET) FOLLOWED BY ANOTHER 4 MG 2 HOURS LATER
     Route: 060
     Dates: start: 20060621, end: 20060621
  2. BUPRENORPHINE, NALOXONE [Interacting]
     Route: 060
     Dates: start: 20060622, end: 20060622
  3. ESTROGENS SOL/INJ [Concomitant]
     Indication: HORMONE LEVEL ABNORMAL
     Route: 065
     Dates: start: 20060515
  4. CLONAZEPAM [Concomitant]
     Indication: ANXIETY
     Route: 048
     Dates: start: 20060115, end: 20060620

REACTIONS (6)
  - ANXIETY [None]
  - BLOOD PRESSURE SYSTOLIC INCREASED [None]
  - FEELING ABNORMAL [None]
  - HYPERTENSION [None]
  - TREMOR [None]
  - URINARY RETENTION [None]
